FAERS Safety Report 9771121 (Version 3)
Quarter: 2017Q4

REPORT INFORMATION
  Report Type: Spontaneous
  Country: IT (occurrence: IT)
  Receive Date: 20131218
  Receipt Date: 20171031
  Transmission Date: 20180321
  Serious: Yes (Hospitalization, Other)
  Sender: FDA-Public Use
  Company Number: IT-BRISTOL-MYERS SQUIBB COMPANY-19893189

PATIENT
  Age: 56 Year
  Sex: Female

DRUGS (3)
  1. ABILIFY [Suspect]
     Active Substance: ARIPIPRAZOLE
     Indication: DEPRESSION
     Dosage: 1 DF: 56 TABS;  RECENT DOSE: 01DEC2013
     Route: 048
     Dates: start: 20131201
  2. FLUVOXAMINE [Suspect]
     Active Substance: FLUVOXAMINE
     Indication: DEPRESSION
     Dosage: 1 DF: 30 UNITS;  RECENT DOSE: 01DEC2013
     Route: 048
     Dates: start: 20131201
  3. FLUVOXAMINE [Suspect]
     Active Substance: FLUVOXAMINE
     Indication: SUICIDE ATTEMPT
     Route: 065

REACTIONS (5)
  - Suicide attempt [Unknown]
  - Intentional overdose [Unknown]
  - Sopor [Unknown]
  - Drug abuse [Unknown]
  - Product use in unapproved indication [Unknown]

NARRATIVE: CASE EVENT DATE: 20131201
